FAERS Safety Report 6516193-6 (Version None)
Quarter: 2009Q4

REPORT INFORMATION
  Report Type: 
  Country: None (occurrence: None)
  Receive Date: 20091223
  Receipt Date: 20091210
  Transmission Date: 20100525
  Serious: Yes (Death)
  Sender: FDA-Public Use
  Company Number: US-BRACCO-003830

PATIENT
  Sex: Male
  Weight: 89 kg

DRUGS (4)
  1. ATROPINE SULFATE [Concomitant]
     Route: 065
     Dates: start: 20091125, end: 20091125
  2. MULTIHANCE [Suspect]
     Indication: NUCLEAR MAGNETIC RESONANCE IMAGING BRAIN
     Route: 042
     Dates: start: 20091125, end: 20091125
  3. MULTIHANCE [Suspect]
     Indication: DEAFNESS
     Route: 042
     Dates: start: 20091125, end: 20091125
  4. EPINEPHRINE [Concomitant]
     Route: 065
     Dates: start: 20091125, end: 20091125

REACTIONS (4)
  - NAUSEA [None]
  - PULSE ABSENT [None]
  - RESPIRATORY ARREST [None]
  - UNRESPONSIVE TO STIMULI [None]
